FAERS Safety Report 13443760 (Version 1)
Quarter: 2017Q2

REPORT INFORMATION
  Report Type: Spontaneous
  Country: US (occurrence: US)
  Receive Date: 20170413
  Receipt Date: 20170413
  Transmission Date: 20170830
  Serious: No
  Sender: FDA-Public Use
  Company Number: None

PATIENT
  Age: 61 Year
  Sex: Female

DRUGS (18)
  1. CHOLECALCIFEROL (VIT D3) [Concomitant]
  2. BACLOFEN. [Concomitant]
     Active Substance: BACLOFEN
  3. BIOTIN [Concomitant]
     Active Substance: BIOTIN
  4. CYANOCOBALAMIN (VIT B-12) [Concomitant]
  5. ASCORBIC ACID. [Concomitant]
     Active Substance: ASCORBIC ACID
  6. NORVASC [Concomitant]
     Active Substance: AMLODIPINE BESYLATE
  7. ACTONEL [Concomitant]
     Active Substance: RISEDRONATE SODIUM
  8. ASPIRIN. [Concomitant]
     Active Substance: ASPIRIN
  9. TAC [Concomitant]
     Active Substance: TRIAMCINOLONE ACETONIDE
  10. MILK OF MAGNESIA [Concomitant]
     Active Substance: MAGNESIUM HYDROXIDE
  11. MELATONIN [Concomitant]
     Active Substance: MELATONIN
  12. FLOMAX [Concomitant]
     Active Substance: TAMSULOSIN HYDROCHLORIDE
  13. AMPYRA [Suspect]
     Active Substance: DALFAMPRIDINE
     Indication: MULTIPLE SCLEROSIS
     Route: 048
     Dates: start: 201104
  14. AVAPRO [Concomitant]
     Active Substance: IRBESARTAN
  15. SENNA [Concomitant]
     Active Substance: SENNA LEAF\SENNOSIDES\SENNOSIDES A AND B
  16. CENTRUM COMPLETE [Concomitant]
  17. PRED FORTE [Concomitant]
     Active Substance: PREDNISOLONE ACETATE
  18. GLATOPA [Concomitant]
     Active Substance: GLATIRAMER ACETATE

REACTIONS (2)
  - Urinary retention [None]
  - Urinary tract infection [None]

NARRATIVE: CASE EVENT DATE: 20170307
